FAERS Safety Report 8112530-X (Version None)
Quarter: 2012Q1

REPORT INFORMATION
  Report Type: 
  Country: None (occurrence: None)
  Receive Date: 20120203
  Receipt Date: 20120127
  Transmission Date: 20120608
  Serious: Yes (Hospitalization)
  Sender: FDA-Public Use
  Company Number: US-AMGEN-USASP2012005834

PATIENT
  Age: 68 Year
  Sex: Male

DRUGS (1)
  1. ENBREL [Suspect]
     Indication: RHEUMATOID ARTHRITIS
     Dosage: 50 MG, QWK
     Dates: start: 20071101, end: 20110901

REACTIONS (6)
  - RENAL CANCER [None]
  - PHOTOSENSITIVITY REACTION [None]
  - ARTHRALGIA [None]
  - RASH ERYTHEMATOUS [None]
  - ASTHENIA [None]
  - ERYTHEMA [None]
